FAERS Safety Report 4577227-1 (Version None)
Quarter: 2005Q1

REPORT INFORMATION
  Report Type: 
  Country: None (occurrence: None)
  Receive Date: 20050209
  Receipt Date: 20050126
  Transmission Date: 20050727
  Serious: Yes (Death, Hospitalization)
  Sender: FDA-Public Use
  Company Number: 2004AL000739

PATIENT
  Age: 74 Year
  Sex: Female

DRUGS (1)
  1. THEOPHYLLINE ELIXIR LIQUID [Suspect]
     Dosage: PO
     Route: 048

REACTIONS (9)
  - BLOOD GLUCOSE INCREASED [None]
  - BLOOD POTASSIUM DECREASED [None]
  - BLOOD PRESSURE DECREASED [None]
  - CARDIAC ARREST [None]
  - DIARRHOEA [None]
  - FALL [None]
  - MEDICATION ERROR [None]
  - TACHYCARDIA [None]
  - TROPONIN INCREASED [None]
